FAERS Safety Report 9351194 (Version 2)
Quarter: 2013Q2

REPORT INFORMATION
  Report Type: Spontaneous
  Country: US (occurrence: US)
  Receive Date: 20130617
  Receipt Date: 20130626
  Transmission Date: 20140414
  Serious: Yes (Other)
  Sender: FDA-Public Use
  Company Number: US-PFIZER INC-2013180663

PATIENT
  Age: 50 Year
  Sex: Female
  Weight: 63.49 kg

DRUGS (2)
  1. CHANTIX [Suspect]
     Indication: SMOKING CESSATION THERAPY
     Dosage: 0.5 MG, 1X/DAY
     Route: 048
     Dates: start: 20130602, end: 20130607
  2. BUSPAR [Interacting]
     Indication: ANXIETY
     Dosage: 5 MG, 2X/DAY
     Route: 048

REACTIONS (6)
  - Drug interaction [Unknown]
  - Aggression [Recovering/Resolving]
  - Malaise [Recovering/Resolving]
  - Feeling abnormal [Recovering/Resolving]
  - Anger [Recovering/Resolving]
  - Tremor [Recovering/Resolving]
